FAERS Safety Report 5972760-X (Version None)
Quarter: 2008Q4

REPORT INFORMATION
  Report Type: 
  Country: None (occurrence: None)
  Receive Date: 20081201
  Receipt Date: 20081124
  Transmission Date: 20090506
  Serious: Yes (Other)
  Sender: FDA-Public Use
  Company Number: IE-TYCO HEALTHCARE/MALLINCKRODT-T200802003

PATIENT

DRUGS (1)
  1. OPTIRAY 300 [Suspect]
     Indication: UROGRAM
     Dosage: 50 ML, SINGLE
     Route: 042
     Dates: start: 20081105, end: 20081105

REACTIONS (2)
  - FLUSHING [None]
  - RASH MACULO-PAPULAR [None]
